FAERS Safety Report 6387388-X (Version None)
Quarter: 2009Q4

REPORT INFORMATION
  Report Type: 
  Country: None (occurrence: None)
  Receive Date: 20091002
  Receipt Date: 20090928
  Transmission Date: 20100525
  Serious: Yes (Other)
  Sender: FDA-Public Use
  Company Number: US-JNJCH-2009025873

PATIENT
  Age: 24 Year
  Sex: Male
  Weight: 74.8 kg

DRUGS (1)
  1. BENADRYL [Suspect]
     Indication: HYPERSENSITIVITY
     Dosage: TEXT:2 TABLETS ONCE IN THE EVENING DAILY
     Route: 048

REACTIONS (1)
  - CONVULSION [None]
